FAERS Safety Report 16782236 (Version 3)
Quarter: 2020Q4

REPORT INFORMATION
  Report Type: Spontaneous
  Country: US (occurrence: US)
  Receive Date: 20190906
  Receipt Date: 20201125
  Transmission Date: 20210113
  Serious: Yes (Hospitalization, Other)
  Sender: FDA-Public Use
  Company Number: US-ASTRAZENECA-2019SF26227

PATIENT
  Age: 11665 Day
  Sex: Male
  Weight: 197.8 kg

DRUGS (69)
  1. FARXIGA [Suspect]
     Active Substance: DAPAGLIFLOZIN PROPANEDIOL
     Indication: BLOOD PRESSURE DECREASED
     Route: 048
     Dates: start: 20150908
  2. NOVOLOG [Concomitant]
     Active Substance: INSULIN ASPART
     Dates: start: 20170526
  3. PROMETHAZINE [Concomitant]
     Active Substance: PROMETHAZINE HYDROCHLORIDE
     Dates: start: 20160426
  4. PROTONIX [Concomitant]
     Active Substance: PANTOPRAZOLE SODIUM
  5. CIPRODEX [Concomitant]
     Active Substance: CIPROFLOXACIN HYDROCHLORIDE\DEXAMETHASONE
  6. LEVAQUIN [Concomitant]
     Active Substance: LEVOFLOXACIN
  7. GABAPENTIN. [Concomitant]
     Active Substance: GABAPENTIN
  8. ONDANSETRON [Concomitant]
     Active Substance: ONDANSETRON
  9. SUCCINYL CHOLINE CHLORIDE [Concomitant]
  10. FARXIGA [Suspect]
     Active Substance: DAPAGLIFLOZIN PROPANEDIOL
     Indication: BLOOD PRESSURE DECREASED
     Route: 048
     Dates: start: 20150905
  11. METFORMIN [Concomitant]
     Active Substance: METFORMIN HYDROCHLORIDE
  12. PRAVASTATIN. [Concomitant]
     Active Substance: PRAVASTATIN
  13. FARXIGA [Suspect]
     Active Substance: DAPAGLIFLOZIN PROPANEDIOL
     Indication: TYPE 2 DIABETES MELLITUS
     Route: 048
     Dates: start: 20150821
  14. FARXIGA [Suspect]
     Active Substance: DAPAGLIFLOZIN PROPANEDIOL
     Indication: BLOOD PRESSURE DECREASED
     Route: 048
     Dates: start: 20150821
  15. FARXIGA [Suspect]
     Active Substance: DAPAGLIFLOZIN PROPANEDIOL
     Indication: TYPE 2 DIABETES MELLITUS
     Route: 048
     Dates: start: 20170526
  16. FARXIGA [Suspect]
     Active Substance: DAPAGLIFLOZIN PROPANEDIOL
     Indication: BLOOD PRESSURE DECREASED
     Route: 048
     Dates: start: 20170526
  17. SOMA [Concomitant]
     Active Substance: CARISOPRODOL
     Dates: start: 20170526
  18. ASPIRIN. [Concomitant]
     Active Substance: ASPIRIN
     Dates: start: 20170227
  19. ZOSYN [Concomitant]
     Active Substance: PIPERACILLIN SODIUM\TAZOBACTAM SODIUM
  20. FAMOTIDIN [Concomitant]
     Active Substance: FAMOTIDINE
  21. AMOXICILLIN. [Concomitant]
     Active Substance: AMOXICILLIN
     Dates: start: 20130906
  22. TOPAMAX [Concomitant]
     Active Substance: TOPIRAMATE
     Dates: start: 20140818
  23. LOVENOX [Concomitant]
     Active Substance: ENOXAPARIN SODIUM
  24. FENTANYL CITRATE. [Concomitant]
     Active Substance: FENTANYL CITRATE
  25. CIPROFLOXACIN HYDROCHLORIDE. [Concomitant]
     Active Substance: CIPROFLOXACIN HYDROCHLORIDE
  26. METOPROLOL. [Concomitant]
     Active Substance: METOPROLOL
     Dates: start: 20170526
  27. DICYCLOMINE [Concomitant]
     Active Substance: DICYCLOMINE HYDROCHLORIDE
     Dates: start: 20170227
  28. SODIUM CHLORIDE. [Concomitant]
     Active Substance: SODIUM CHLORIDE
  29. MORPHINE [Concomitant]
     Active Substance: MORPHINE
  30. FLUCONAZOLE. [Concomitant]
     Active Substance: FLUCONAZOLE
  31. MILK OF MAGNESIA [Concomitant]
     Active Substance: MAGNESIUM HYDROXIDE
  32. UNASYN [Concomitant]
     Active Substance: AMPICILLIN SODIUM\SULBACTAM SODIUM
  33. MIDAZOLAM. [Concomitant]
     Active Substance: MIDAZOLAM
  34. FARXIGA [Suspect]
     Active Substance: DAPAGLIFLOZIN PROPANEDIOL
     Indication: WEIGHT DECREASED
     Route: 048
     Dates: start: 20150905
  35. BROMOCRIPTINE [Concomitant]
     Active Substance: BROMOCRIPTINE
     Dates: start: 20140709
  36. BENTYL [Concomitant]
     Active Substance: DICYCLOMINE HYDROCHLORIDE
     Dates: start: 20150426
  37. ZOFRAN [Concomitant]
     Active Substance: ONDANSETRON HYDROCHLORIDE
  38. NORCO [Concomitant]
     Active Substance: ACETAMINOPHEN\HYDROCODONE BITARTRATE
  39. VANCOMYCIN [Concomitant]
     Active Substance: VANCOMYCIN
  40. CABERGOLINE. [Concomitant]
     Active Substance: CABERGOLINE
  41. GLUCAGEN [Concomitant]
     Active Substance: GLUCAGON HYDROCHLORIDE
  42. AUGMENTIN [Concomitant]
     Active Substance: AMOXICILLIN\CLAVULANATE POTASSIUM
     Dates: start: 20170227
  43. MIRALAX [Concomitant]
     Active Substance: POLYETHYLENE GLYCOL 3350
  44. CLOBETASOL [Concomitant]
     Active Substance: CLOBETASOL
  45. METOPROLOL TARTRATE. [Concomitant]
     Active Substance: METOPROLOL TARTRATE
  46. FARXIGA [Suspect]
     Active Substance: DAPAGLIFLOZIN PROPANEDIOL
     Indication: WEIGHT DECREASED
     Route: 048
     Dates: start: 20170526
  47. FARXIGA [Suspect]
     Active Substance: DAPAGLIFLOZIN PROPANEDIOL
     Indication: WEIGHT DECREASED
     Route: 048
     Dates: start: 20150908
  48. DEXTROSE. [Concomitant]
     Active Substance: DEXTROSE
  49. NAPROSYN [Concomitant]
     Active Substance: NAPROXEN
  50. LOSARTAN POTASSIUM. [Concomitant]
     Active Substance: LOSARTAN POTASSIUM
  51. METFORMIN HYDROCHLORIDE. [Concomitant]
     Active Substance: METFORMIN HYDROCHLORIDE
  52. FARXIGA [Suspect]
     Active Substance: DAPAGLIFLOZIN PROPANEDIOL
     Indication: WEIGHT DECREASED
     Route: 048
     Dates: start: 20150821
  53. FARXIGA [Suspect]
     Active Substance: DAPAGLIFLOZIN PROPANEDIOL
     Indication: TYPE 2 DIABETES MELLITUS
     Route: 048
     Dates: start: 20150908
  54. FARXIGA [Suspect]
     Active Substance: DAPAGLIFLOZIN PROPANEDIOL
     Indication: TYPE 2 DIABETES MELLITUS
     Route: 048
     Dates: start: 20150905
  55. INSULIN [Concomitant]
     Active Substance: INSULIN NOS
     Dates: start: 20170526
  56. LOSARTAN. [Concomitant]
     Active Substance: LOSARTAN
     Dates: start: 20170227
  57. LYRICA [Concomitant]
     Active Substance: PREGABALIN
  58. ZOSTAVAX [Concomitant]
     Active Substance: VARICELLA-ZOSTER VIRUS STRAIN OKA/MERCK LIVE ANTIGEN
     Dates: start: 20140716
  59. BACLOFEN. [Concomitant]
     Active Substance: BACLOFEN
  60. BYETTA [Concomitant]
     Active Substance: EXENATIDE
  61. LIPITOR [Concomitant]
     Active Substance: ATORVASTATIN CALCIUM
  62. LEVEMIR [Concomitant]
     Active Substance: INSULIN DETEMIR
  63. LISINOPRIL. [Concomitant]
     Active Substance: LISINOPRIL
     Route: 048
     Dates: start: 20130916
  64. PRAVASTATIN SODIUM. [Concomitant]
     Active Substance: PRAVASTATIN SODIUM
  65. MUPIROCIN. [Concomitant]
     Active Substance: MUPIROCIN
     Dates: start: 20170526
  66. TYLENOL [Concomitant]
     Active Substance: ACETAMINOPHEN
  67. ENOXAPARIN [Concomitant]
     Active Substance: ENOXAPARIN
  68. PHENYLEPHRINE [Concomitant]
     Active Substance: PHENYLEPHRINE HYDROCHLORIDE
  69. BROMOCRIPTINE MESYLATE [Concomitant]
     Active Substance: BROMOCRIPTINE MESYLATE

REACTIONS (11)
  - Necrotising fasciitis [Unknown]
  - Subcutaneous abscess [Unknown]
  - Fournier^s gangrene [Unknown]
  - Groin abscess [Unknown]
  - Sepsis [Unknown]
  - Perineal cellulitis [Unknown]
  - Scrotal abscess [Unknown]
  - Leukocytosis [Unknown]
  - Perineal abscess [Unknown]
  - Cellulitis [Unknown]
  - Perirectal abscess [Unknown]

NARRATIVE: CASE EVENT DATE: 20150902
